FAERS Safety Report 19126552 (Version 1)
Quarter: 2021Q2

REPORT INFORMATION
  Report Type: Spontaneous
  Country: CN (occurrence: CN)
  Receive Date: 20210412
  Receipt Date: 20210412
  Transmission Date: 20210717
  Serious: Yes (Hospitalization, Disabling)
  Sender: FDA-Public Use
  Company Number: CN-PFIZER INC-2021361367

PATIENT
  Age: 5 Year
  Sex: Male
  Weight: 25 kg

DRUGS (10)
  1. SOLU?MEDROL [Suspect]
     Active Substance: METHYLPREDNISOLONE SODIUM SUCCINATE
     Indication: PROTEINURIA
     Dosage: 300.000 MG, 1X/DAY (PULSE THERAPY)
     Route: 041
     Dates: start: 20210317, end: 20210319
  2. AMOXICILLIN AND CLAVULANATE POTASSIUM [AMOXICILLIN SODIUM;CLAVULANATE [Concomitant]
     Active Substance: AMOXICILLIN\CLAVULANATE POTASSIUM
     Indication: UPPER RESPIRATORY TRACT INFECTION
     Dosage: 0.75 G, 3X/DAY
     Route: 041
     Dates: start: 202103
  3. TACROLIMUS. [Concomitant]
     Active Substance: TACROLIMUS
     Indication: IMMUNOSUPPRESSANT DRUG THERAPY
     Dosage: 0.75 MG, DAILY (0.5 MG/MORNING, 0.25 MG/NIGHT)
     Dates: start: 202103
  4. PIPERAZINE FERULATE [Concomitant]
     Active Substance: PIPERAZINE BISFERULATE
     Indication: PROPHYLAXIS
     Dosage: 50 MG, 3X/DAY
     Route: 048
     Dates: start: 202103
  5. PREDNISONE. [Concomitant]
     Active Substance: PREDNISONE
     Indication: PROTEINURIA
     Dosage: 15 MG, 1X/DAY
     Route: 048
     Dates: start: 202103
  6. PREDNISONE. [Concomitant]
     Active Substance: PREDNISONE
     Dosage: UNK
     Dates: start: 20210311
  7. VITAMIN D CHEWING CALCIUM [Concomitant]
     Dosage: 1 DF, DAILY
     Dates: start: 202103
  8. WUZHI [Concomitant]
     Dosage: 1 DF, 2X/DAY
     Dates: start: 202103
  9. CALCITRIOL. [Concomitant]
     Active Substance: CALCITRIOL
     Indication: OSTEOPOROSIS PROPHYLAXIS
     Dosage: UNK, ALTERNATE DAY
     Dates: start: 202103
  10. HYDROCORTISONE SODIUM SUCCINATE [Concomitant]
     Active Substance: HYDROCORTISONE SODIUM SUCCINATE
     Indication: PROTEINURIA
     Dosage: 75 MG, 2X/DAY
     Route: 041
     Dates: start: 20210311

REACTIONS (1)
  - Ocular hypertension [Recovering/Resolving]

NARRATIVE: CASE EVENT DATE: 20210318
